FAERS Safety Report 5109796-7 (Version None)
Quarter: 2006Q3

REPORT INFORMATION
  Report Type: 
  Country: None (occurrence: None)
  Receive Date: 20060915
  Receipt Date: 20060904
  Transmission Date: 20061208
  Serious: Yes (Other)
  Sender: FDA-Public Use
  Company Number: HQWYE320205SEP06

PATIENT
  Age: 52 Year
  Sex: Male

DRUGS (2)
  1. PANTOPRAZOLE SODIUM [Suspect]
     Indication: DYSPEPSIA
     Dosage: 40 MG AS NEEDED/ABOUT ONE MONTH
  2. HYZAAR [Concomitant]

REACTIONS (2)
  - BRONCHOSPASM [None]
  - PRURITUS [None]
